FAERS Safety Report 9524493 (Version 1)
Quarter: 2013Q1

REPORT INFORMATION
  Report Type: Spontaneous
  Country: US (occurrence: None)
  Receive Date: 20130305
  Receipt Date: 20130305
  Transmission Date: 20140127
  Serious: Yes (Hospitalization)
  Sender: FDA-Public Use
  Company Number: 163-21880-12021048

PATIENT
  Age: 67 Year
  Sex: Male

DRUGS (6)
  1. REVLIMID [Suspect]
     Indication: PLASMA CELL MYELOMA
     Dosage: 28DAYS
     Route: 048
     Dates: start: 201201, end: 201201
  2. ASA (ACETYLOSALICYLIC ACID) [Concomitant]
  3. CARVEVDILOL (CARVEDILOL) [Concomitant]
  4. GABAPENTIN (GABAPENTIN) [Concomitant]
  5. COLCHICINE (COLCHICINE) [Concomitant]
  6. DEXAMETHASONE (DEXAMETHASONE) [Concomitant]

REACTIONS (3)
  - Sepsis [None]
  - Pyrexia [None]
  - Pneumonia [None]
